FAERS Safety Report 9228048 (Version 1)
Quarter: 2013Q2

REPORT INFORMATION
  Report Type: Spontaneous
  Country: US (occurrence: US)
  Receive Date: 20130412
  Receipt Date: 20130412
  Transmission Date: 20140414
  Serious: No
  Sender: FDA-Public Use
  Company Number: US-GLAXOSMITHKLINE-A1010785A

PATIENT
  Age: 73 Year
  Sex: Male

DRUGS (10)
  1. JALYN [Suspect]
     Indication: PROSTATOMEGALY
     Dosage: 1CAPL PER DAY
     Route: 048
     Dates: start: 20130125
  2. LIPITOR [Concomitant]
  3. METOPROLOL [Concomitant]
  4. PLAVIX [Concomitant]
  5. LISINOPRIL [Concomitant]
  6. ENTERIC COATED ASPIRIN [Concomitant]
  7. MULTIVITAMIN [Concomitant]
  8. CALCIUM [Concomitant]
  9. GLUCOSAMINE [Concomitant]
  10. GINSENG [Concomitant]

REACTIONS (3)
  - Nocturia [Recovering/Resolving]
  - Drug ineffective [Unknown]
  - Therapeutic response decreased [Unknown]
